FAERS Safety Report 25543408 (Version 4)
Quarter: 2025Q3

REPORT INFORMATION
  Report Type: Spontaneous
  Country: JP (occurrence: JP)
  Receive Date: 20250711
  Receipt Date: 20250804
  Transmission Date: 20251021
  Serious: Yes (Death, Other)
  Sender: MERCK SHARP & DOHME LLC
  Company Number: JP-009507513-2307862

PATIENT
  Age: 88 Year
  Sex: Male

DRUGS (1)
  1. LAGEVRIO [Suspect]
     Active Substance: MOLNUPIRAVIR
     Indication: COVID-19 treatment
     Route: 048

REACTIONS (3)
  - COVID-19 [Fatal]
  - Gastrointestinal haemorrhage [Unknown]
  - Inappropriate schedule of product administration [Unknown]
